FAERS Safety Report 20002636 (Version 9)
Quarter: 2022Q2

REPORT INFORMATION
  Report Type: Report from Study
  Country: US (occurrence: US)
  Receive Date: 20211027
  Receipt Date: 20220603
  Transmission Date: 20220720
  Serious: Yes (Other)
  Sender: FDA-Public Use
  Company Number: US-NOVARTISTESTPH-NVSC2021US244220

PATIENT
  Age: 36 Year
  Sex: Female

DRUGS (2)
  1. KESIMPTA [Suspect]
     Active Substance: OFATUMUMAB
     Indication: Multiple sclerosis
     Dosage: 20 MG, QMO
     Route: 058
     Dates: start: 20211019
  2. KESIMPTA [Suspect]
     Active Substance: OFATUMUMAB
     Dosage: 0.4 ML, STARTER DOSE WEEK (0,1+2)
     Route: 058

REACTIONS (20)
  - Syncope [Recovering/Resolving]
  - Fall [Recovering/Resolving]
  - Pain [Unknown]
  - Chills [Recovering/Resolving]
  - Balance disorder [Unknown]
  - Aphasia [Unknown]
  - Asthenia [Unknown]
  - Urinary incontinence [Recovering/Resolving]
  - Injection site pain [Unknown]
  - Tremor [Unknown]
  - Influenza like illness [Unknown]
  - Dizziness [Unknown]
  - Headache [Unknown]
  - Vomiting [Unknown]
  - Dehydration [Unknown]
  - Vertigo [Unknown]
  - Confusional state [Unknown]
  - Device leakage [Unknown]
  - Accidental exposure to product [Unknown]
  - Product dose omission issue [Unknown]

NARRATIVE: CASE EVENT DATE: 20211019
